FAERS Safety Report 9516796 (Version 1)
Quarter: 2013Q1

REPORT INFORMATION
  Report Type: Spontaneous
  Country: US (occurrence: None)
  Receive Date: 20130305
  Receipt Date: 20130305
  Transmission Date: 20140127
  Serious: Yes (Other)
  Sender: FDA-Public Use
  Company Number: 163-21880-12081162

PATIENT
  Age: 78 Year
  Sex: Male

DRUGS (4)
  1. REVLIMID [Suspect]
     Indication: PLASMA CELL MYELOMA
     Dosage: TEMPORARILY INTERRUPTED
     Route: 048
     Dates: start: 20120315
  2. PREVACID (LANSOPRAZOLE) [Concomitant]
  3. ZOMETA (ZOLEDRONIC ACID) [Concomitant]
  4. FUROSEMIDE (FUROSEMIDE) [Concomitant]

REACTIONS (2)
  - Full blood count decreased [None]
  - Rash [None]
